FAERS Safety Report 11828868 (Version 1)
Quarter: 2015Q4

REPORT INFORMATION
  Report Type: Spontaneous
  Country: JP (occurrence: JP)
  Receive Date: 20151211
  Receipt Date: 20151211
  Transmission Date: 20160305
  Serious: Yes (Other)
  Sender: FDA-Public Use
  Company Number: JP-PFIZER INC-2015433578

PATIENT
  Age: 3 Year
  Sex: Female

DRUGS (1)
  1. ZARONTIN [Suspect]
     Active Substance: ETHOSUXIMIDE

REACTIONS (3)
  - Generalised tonic-clonic seizure [Recovering/Resolving]
  - Myoclonic epilepsy [Recovering/Resolving]
  - Electroencephalogram abnormal [Recovering/Resolving]
